FAERS Safety Report 6027128-7 (Version None)
Quarter: 2009Q1

REPORT INFORMATION
  Report Type: 
  Country: None (occurrence: None)
  Receive Date: 20090105
  Receipt Date: 20081222
  Transmission Date: 20090719
  Serious: No
  Sender: FDA-Public Use
  Company Number: ES-AVENTIS-200821842GDDC

PATIENT
  Age: 35 Year
  Sex: Female

DRUGS (3)
  1. ARAVA [Suspect]
     Indication: RHEUMATOID ARTHRITIS
     Dosage: DOSE: UNK
     Dates: end: 20081216
  2. ENBREL [Suspect]
     Indication: RHEUMATOID ARTHRITIS
     Dosage: DOSE: UNK
  3. CONTRACEPTIVES NOS [Suspect]
     Dosage: DOSE: UNK

REACTIONS (1)
  - DRUG EXPOSURE DURING PREGNANCY [None]
